FAERS Safety Report 8283536 (Version 3)
Quarter: 2013Q2

REPORT INFORMATION
  Report Type: Spontaneous
  Country: US (occurrence: None)
  Receive Date: 20111122
  Receipt Date: 20120426
  Transmission Date: 20140414
  Serious: Yes (Other)
  Sender: FDA-Public Use
  Company Number: PHHY2011US54684

PATIENT
  Age: 55 Year
  Sex: Female
  Weight: 91.7 kg

DRUGS (6)
  1. GILENYA [Suspect]
     Indication: RELAPSING-REMITTING MULTIPLE SCLEROSIS
     Dosage: 0.5 MG, QD, ORAL
     Dates: start: 20110606, end: 20111123
  2. BACLOFEN (BACLOFEN) [Concomitant]
  3. CARBAMAZEPINE (CARBAMAZEPINE) [Concomitant]
  4. LOSARTAN (LOSARTAN) [Concomitant]
  5. NAMENDA (MEMANTINE HYDROCHLORIDE) [Concomitant]
  6. OXYCONTIN (OXYCODONE HYDROCHLORIDE) [Concomitant]

REACTIONS (5)
  - GROIN PAIN [None]
  - PAIN IN EXTREMITY [None]
  - FATIGUE [None]
  - HEADACHE [None]
  - NASOPHARYNGITIS [None]
